FAERS Safety Report 13047512 (Version 4)
Quarter: 2017Q3

REPORT INFORMATION
  Report Type: Spontaneous
  Country: KR (occurrence: KR)
  Receive Date: 20161220
  Receipt Date: 20170717
  Transmission Date: 20171127
  Serious: Yes (Death, Hospitalization, Other)
  Sender: FDA-Public Use
  Company Number: KR-009507513-1611KOR012878

PATIENT
  Age: 64 Year
  Sex: Male

DRUGS (43)
  1. DEXAMETHASONE SODIUM PHOSPHATE. [Concomitant]
     Active Substance: DEXAMETHASONE SODIUM PHOSPHATE
     Dosage: STRENGHT: 5MG/ML; 8 MG, QD
     Route: 042
     Dates: start: 20161118, end: 20161120
  2. CORTISOLU [Concomitant]
     Active Substance: HYDROCORTISONE SODIUM SUCCINATE
     Indication: PREMEDICATION
     Dosage: 100 MG, ONCE
     Route: 042
     Dates: start: 20161117, end: 20161117
  3. PENIRAMIN [Concomitant]
     Indication: PREMEDICATION
     Dosage: 4 MG, ONCE
     Route: 042
     Dates: start: 20161110, end: 20161110
  4. PENIRAMIN [Concomitant]
     Dosage: 4 MG, ONCE
     Route: 042
     Dates: start: 20161122, end: 20161122
  5. ACTONEL [Concomitant]
     Active Substance: RISEDRONATE SODIUM
     Dosage: 35 MG, ONCE
     Route: 048
     Dates: start: 20161114, end: 20161114
  6. ACTONEL [Concomitant]
     Active Substance: RISEDRONATE SODIUM
     Dosage: 35 MG, ONCE
     Route: 048
     Dates: start: 20161121, end: 20161121
  7. MEPEM [Concomitant]
     Active Substance: MEROPENEM
     Indication: PNEUMONIA
     Dosage: 1 G, TID
     Route: 042
     Dates: start: 20161121
  8. ESOMEZOL (ESOMEPRAZOLE STRONTIUM) [Concomitant]
     Active Substance: ESOMEPRAZOLE STRONTIUM
     Indication: PROPHYLAXIS AGAINST GASTROINTESTINAL ULCER
     Dosage: 20 MG, QD
     Route: 048
     Dates: start: 20161018, end: 20161108
  9. CISPLATIN. [Concomitant]
     Active Substance: CISPLATIN
     Indication: CHEMOTHERAPY
     Dosage: STRENGHT: 50MG/100ML; 85 MG, ONCE; CYCLE 1
     Route: 042
     Dates: start: 20161117, end: 20161117
  10. SCD RANITIDINE [Concomitant]
     Indication: PREMEDICATION
     Dosage: 50 MG, ONCE.
     Route: 042
     Dates: start: 20161117, end: 20161117
  11. CRAVIT [Concomitant]
     Active Substance: LEVOFLOXACIN
     Indication: PNEUMONIA
     Dosage: STRENGHT: 750MG/150ML; 750 MG, QD
     Route: 042
     Dates: start: 20161120, end: 20161121
  12. CRAVIT [Concomitant]
     Active Substance: LEVOFLOXACIN
     Indication: PYREXIA
     Dosage: STRENGHT: 750MG/150ML; 750 MG, QD
     Route: 042
     Dates: start: 20161103, end: 20161110
  13. ALBUMIN HUMAN [Concomitant]
     Active Substance: ALBUMIN HUMAN
     Indication: HYPOALBUMINAEMIA
     Dosage: STRENGTH: 20% 100ML; 100 ML, QD
     Route: 042
     Dates: start: 20161121
  14. HYDROCORTISONE. [Concomitant]
     Active Substance: HYDROCORTISONE
     Dosage: 15 MG, BID
     Route: 048
     Dates: start: 20161121, end: 20161122
  15. TARGIN [Concomitant]
     Active Substance: NALOXONE HYDROCHLORIDE\OXYCODONE HYDROCHLORIDE
     Indication: BACK PAIN
     Dosage: 1 DF (TABLET), BID
     Route: 048
     Dates: start: 20161114, end: 20161121
  16. LASIX [Concomitant]
     Active Substance: FUROSEMIDE
     Indication: HYPOALBUMINAEMIA
     Dosage: STENGTH: 20MG/2ML; 20 MG, BID
     Route: 042
     Dates: start: 20161121
  17. CEFTRIAXONE SODIUM. [Concomitant]
     Active Substance: CEFTRIAXONE SODIUM
     Indication: PYREXIA
     Dosage: 2 G, QD
     Route: 042
     Dates: start: 20161111, end: 20161120
  18. TABAXIN [Concomitant]
     Active Substance: PIPERACILLIN SODIUM\TAZOBACTAM SODIUM
     Indication: PNEUMONIA
     Dosage: 1 DF (VIAL), TID
     Route: 042
     Dates: start: 20161120, end: 20161121
  19. PHOSTEN [Concomitant]
     Indication: HYPOPHOSPHATAEMIA
     Dosage: STRENGTH: 20 ML (VIAL); 20 ML, QD
     Route: 042
     Dates: start: 20161121, end: 20161129
  20. DENOGAN [Concomitant]
     Active Substance: PROPACETAMOL HYDROCHLORIDE
     Indication: PYREXIA
     Dosage: 1 DF (VIAL), TID
     Route: 042
     Dates: start: 20161029
  21. TRIDOL (TRAMADOL HYDROCHLORIDE) [Concomitant]
     Indication: BACK PAIN
     Dosage: 50 MG, QD
     Route: 042
     Dates: start: 20161106, end: 20161107
  22. PENIRAMIN [Concomitant]
     Dosage: 4 MG, ONCE
     Route: 042
     Dates: start: 20161130, end: 20161130
  23. TAXOL [Concomitant]
     Active Substance: PACLITAXEL
     Indication: CHEMOTHERAPY
     Dosage: 185 MG, ONCE, CYCLE 1
     Route: 042
     Dates: start: 20161117, end: 20161117
  24. DEXAMETHASONE SODIUM PHOSPHATE. [Concomitant]
     Active Substance: DEXAMETHASONE SODIUM PHOSPHATE
     Indication: ANTIEMETIC SUPPORTIVE CARE
     Dosage: STRENGHT: 5MG/ML; 12 MG, ONCE
     Route: 042
     Dates: start: 20161117, end: 20161117
  25. ALOXI [Concomitant]
     Active Substance: PALONOSETRON HYDROCHLORIDE
     Indication: ANTIEMETIC SUPPORTIVE CARE
     Dosage: 0.25 MG, ONCE
     Route: 042
     Dates: start: 20161117, end: 20161117
  26. DICAMAX [Concomitant]
     Indication: OSTEOPOROSIS
     Dosage: 1 DF (TABLET), QD
     Route: 048
     Dates: start: 20161020, end: 20161122
  27. LASIX [Concomitant]
     Active Substance: FUROSEMIDE
     Indication: ANAEMIA
     Dosage: STENGTH: 20MG/2ML; 20 MG, ONCE
     Route: 042
     Dates: start: 20161117, end: 20161117
  28. MUCOSTEN [Concomitant]
     Indication: PROPHYLAXIS
     Dosage: STRENGHT: 10% 3 ML; 300 MG, BID
     Route: 042
     Dates: start: 20161120
  29. PANTOLINE TABLETS [Concomitant]
     Indication: PROPHYLAXIS AGAINST GASTROINTESTINAL ULCER
     Dosage: 20 MG, QD
     Route: 048
     Dates: start: 20161109, end: 20161122
  30. TARGIN [Concomitant]
     Active Substance: NALOXONE HYDROCHLORIDE\OXYCODONE HYDROCHLORIDE
     Indication: BACK PAIN
     Dosage: 1 DF (TABLET), BID
     Route: 048
     Dates: start: 20161105, end: 20161121
  31. HALOPERIDOL. [Concomitant]
     Active Substance: HALOPERIDOL
     Indication: DELIRIUM
     Dosage: 1.5 MG, TID
     Route: 030
     Dates: start: 20161101, end: 20161121
  32. PENIRAMIN [Concomitant]
     Dosage: 4 MG, ONCE
     Route: 042
     Dates: start: 20161127, end: 20161127
  33. HYDROCORTISONE. [Concomitant]
     Active Substance: HYDROCORTISONE
     Indication: ADRENAL INSUFFICIENCY
     Dosage: 15 MG, BID
     Route: 048
     Dates: start: 20161116, end: 20161116
  34. CORTISOLU [Concomitant]
     Active Substance: HYDROCORTISONE SODIUM SUCCINATE
     Indication: ADRENAL INSUFFICIENCY
     Dosage: 25 MG, TID
     Route: 042
     Dates: start: 20161121, end: 20161207
  35. TARGIN [Concomitant]
     Active Substance: NALOXONE HYDROCHLORIDE\OXYCODONE HYDROCHLORIDE
     Indication: BACK PAIN
     Dosage: 1 DF (TABLET), BID
     Route: 048
     Dates: start: 20161114, end: 20161121
  36. LASIX [Concomitant]
     Active Substance: FUROSEMIDE
     Indication: PREMEDICATION
     Dosage: STENGTH: 20MG/2ML; 20 MG, ONCE
     Route: 042
     Dates: start: 20161110, end: 20161110
  37. KETOPROFEN. [Concomitant]
     Active Substance: KETOPROFEN
     Indication: PYREXIA
     Dosage: STRENGTH: 100MG/2ML; 100 MG, QD
     Route: 042
     Dates: start: 20161117, end: 20161129
  38. MACPERAN [Concomitant]
     Active Substance: METOCLOPRAMIDE HYDROCHLORIDE
     Indication: NAUSEA
     Dosage: 10 MG, BID
     Route: 042
     Dates: start: 20161114, end: 20161117
  39. EMEND (FOSAPREPITANT DIMEGLUMINE) [Suspect]
     Active Substance: FOSAPREPITANT DIMEGLUMINE
     Indication: PROPHYLAXIS OF NAUSEA AND VOMITING
     Dosage: 150 MG, ONCE
     Route: 042
     Dates: start: 20161117, end: 20161117
  40. FLASINYL [Concomitant]
     Indication: PYREXIA
     Dosage: 500 MG, TID
     Route: 048
     Dates: start: 20161111, end: 20161120
  41. PENIRAMIN [Concomitant]
     Indication: ANAEMIA
     Dosage: 4 MG, ONCE
     Route: 042
     Dates: start: 20161117, end: 20161117
  42. ACTONEL [Concomitant]
     Active Substance: RISEDRONATE SODIUM
     Indication: OSTEOPOROSIS
     Dosage: 35 MG, ONCE
     Route: 048
     Dates: start: 20161107, end: 20161107
  43. VANCOMYCIN HYDROCHLORIDE. [Concomitant]
     Active Substance: VANCOMYCIN HYDROCHLORIDE
     Indication: PNEUMONIA
     Dosage: STRENGTH: 1G/V; 1 G, BID
     Route: 042
     Dates: start: 20161121

REACTIONS (2)
  - Dyspnoea [Fatal]
  - Septic shock [Fatal]

NARRATIVE: CASE EVENT DATE: 20161121
